FAERS Safety Report 5163816-2 (Version None)
Quarter: 2006Q4

REPORT INFORMATION
  Report Type: 
  Country: None (occurrence: None)
  Receive Date: 20061129
  Receipt Date: 20061129
  Transmission Date: 20070319
  Serious: Yes (Other)
  Sender: FDA-Public Use
  Company Number: None

PATIENT
  Age: 26 Year
  Sex: Male
  Weight: 70.3075 kg

DRUGS (2)
  1. CLONAZEPAM [Suspect]
     Indication: THERAPY CESSATION
     Dosage: .25MG ONCE A DAY PO
     Route: 048
     Dates: start: 20060527, end: 20060611
  2. TRAMADOL HCL [Concomitant]

REACTIONS (7)
  - BURNING SENSATION [None]
  - CHEST PAIN [None]
  - DEPRESSION [None]
  - DRUG INEFFECTIVE [None]
  - HEADACHE [None]
  - NERVOUS SYSTEM DISORDER [None]
  - PAIN [None]
